FAERS Safety Report 9149058 (Version 1)
Quarter: 2013Q1

REPORT INFORMATION
  Report Type: Spontaneous
  Country: US (occurrence: None)
  Receive Date: 20130304
  Receipt Date: 20130304
  Transmission Date: 20140127
  Serious: Yes (Death)
  Sender: FDA-Public Use
  Company Number: 1616159

PATIENT
  Sex: 0

DRUGS (3)
  1. METOCLOPRAMIDE [Suspect]
     Indication: ABDOMINAL DISTENSION
  2. METOCLOPRAMIDE [Suspect]
     Indication: DUODENOGASTRIC REFLUX
  3. METOCLOPRAMIDE [Suspect]
     Indication: DYSPEPSIA

REACTIONS (3)
  - Nervous system disorder [None]
  - Extrapyramidal disorder [None]
  - Tardive dyskinesia [None]
